FAERS Safety Report 18652441 (Version 1)
Quarter: 2020Q4

REPORT INFORMATION
  Report Type: Spontaneous
  Country: US (occurrence: US)
  Receive Date: 20201223
  Receipt Date: 20201223
  Transmission Date: 20210114
  Serious: Yes (Other)
  Sender: FDA-Public Use
  Company Number: US-SUN PHARMACEUTICAL INDUSTRIES LTD-2020R1-271812

PATIENT
  Age: 55 Year
  Sex: Female

DRUGS (1)
  1. PREDNISONE. [Suspect]
     Active Substance: PREDNISONE
     Indication: EOSINOPHILIC PNEUMONIA CHRONIC
     Dosage: 20 MILLIGRAM, DAILY
     Route: 048

REACTIONS (6)
  - Drug intolerance [Not Recovered/Not Resolved]
  - Intentional product misuse [Unknown]
  - Insomnia [Unknown]
  - Treatment noncompliance [Unknown]
  - Irritability [Unknown]
  - Paranoia [Unknown]
